FAERS Safety Report 7470789-6 (Version None)
Quarter: 2011Q2

REPORT INFORMATION
  Report Type: 
  Country: None (occurrence: None)
  Receive Date: 20110510
  Receipt Date: 20110405
  Transmission Date: 20111010
  Serious: No
  Sender: FDA-Public Use
  Company Number: US-BAYER-2011-031505

PATIENT
  Sex: Female
  Weight: 61 kg

DRUGS (2)
  1. MIDOL LIQUID GELS [Suspect]
     Indication: DYSMENORRHOEA
     Dosage: 1 DF, Q4HR
     Route: 048
     Dates: start: 20110404, end: 20110405
  2. ORTHO-NOVUM 7/7/7-21 [Concomitant]
     Dosage: UNK
     Route: 048

REACTIONS (1)
  - DYSMENORRHOEA [None]
